FAERS Safety Report 6528455 (Version 2)
Quarter: 2020Q3

REPORT INFORMATION
  Report Type: Report from Study
  Country: SV (occurrence: CR)
  Receive Date: 20080116
  Receipt Date: 20080128
  Transmission Date: 20201104
  Serious: Yes (Death)
  Sender: FDA-Public Use
  Company Number: CR-ROCHE-533262

PATIENT
  Sex: Female

DRUGS (1)
  1. IBANDRONIC ACID. [Suspect]
     Active Substance: IBANDRONIC ACID
     Indication: OSTEOPOROSIS
     Route: 048
     Dates: start: 20070915, end: 20071015

REACTIONS (2)
  - Cholecystectomy [Fatal]
  - Death [Fatal]

NARRATIVE: CASE EVENT DATE: 20071121
